FAERS Safety Report 4631645-1 (Version None)
Quarter: 2005Q2

REPORT INFORMATION
  Report Type: 
  Country: None (occurrence: None)
  Receive Date: 20050407
  Receipt Date: 20050328
  Transmission Date: 20051028
  Serious: Yes (Other)
  Sender: FDA-Public Use
  Company Number: 2005051095

PATIENT
  Sex: Female

DRUGS (1)
  1. DOXYCYCLINE [Suspect]
     Indication: INFLUENZA
     Dates: start: 19850101, end: 20050325

REACTIONS (2)
  - SENSORY DISTURBANCE [None]
  - URTICARIA [None]
